FAERS Safety Report 16266397 (Version 2)
Quarter: 2019Q3

REPORT INFORMATION
  Report Type: Report from Study
  Country: US (occurrence: US)
  Receive Date: 20190502
  Receipt Date: 20190702
  Transmission Date: 20191004
  Serious: Yes (Hospitalization)
  Sender: FDA-Public Use
  Company Number: US-ADAMAS PHARMA, LLC-2019ADA00456

PATIENT
  Age: 63 Year
  Sex: Female
  Weight: 18.86 kg

DRUGS (23)
  1. ENBRACE HR [Concomitant]
     Active Substance: 1,2-DOCOSAHEXANOYL-SN-GLYCERO-3-PHOSPHOSERINE CALCIUM\1,2-ICOSAPENTOYL-SN-GLYCERO-3-PHOSPHOSERINE CALCIUM\BETAINE\COBAMAMIDE\COCARBOXYLASE\FERROUS CYSTEINE GLYCINATE\FLAVIN ADENINE DINUCLEOTIDE\FOLIC ACID\LEUCOVORIN\LEVOMEFOLATE MAGNESIUM\MAGNESIUM ASCORBATE\MAGNESIUM L-THREONATE\NADH\PHOSPHATIDYL S
     Dosage: 1 CAPSULES, 1X/DAY
     Route: 048
  2. GOCOVRI [Suspect]
     Active Substance: AMANTADINE
     Indication: DYSKINESIA
     Dosage: 137 MG, 1X/DAY AT BEDTIME
     Route: 048
     Dates: start: 20181113
  3. CARBIDOPA/LEVODOPA [Concomitant]
     Active Substance: CARBIDOPA\LEVODOPA
     Dosage: 1 TABLETS, 6X/DAY
  4. RASAGILINE MESYLATE. [Concomitant]
     Active Substance: RASAGILINE MESYLATE
  5. ROPINIROLE HCL ER [Concomitant]
     Dosage: UNK
  6. DEEP BRAIN STIMULATION [Concomitant]
  7. MULTIVITAMIN [Concomitant]
     Active Substance: VITAMINS
  8. LOPERAMIDE [Concomitant]
     Active Substance: LOPERAMIDE
     Dosage: 2 MG, AS NEEDED WITH EACH LOOSE STOOL
     Dates: end: 2019
  9. CARBIDOPA/LEVODOPA [Concomitant]
     Active Substance: CARBIDOPA\LEVODOPA
     Dosage: 1 TABLETS, AS NEEDED
  10. CARBIDOPA/LEVODOPA ER [Concomitant]
     Active Substance: CARBIDOPA\LEVODOPA
     Dosage: 1 TABLETS, 6X/DAY
  11. ZOLOFT [Concomitant]
     Active Substance: SERTRALINE HYDROCHLORIDE
     Dosage: 25 MG, 1X/DAY
     Route: 048
     Dates: end: 2019
  12. ASPIRIN. [Concomitant]
     Active Substance: ASPIRIN
     Dosage: 81 MG, 1X/DAY
     Route: 048
  13. VITAMIN E [Concomitant]
     Active Substance: .ALPHA.-TOCOPHEROL
  14. BISACODYL. [Concomitant]
     Active Substance: BISACODYL
     Dosage: 10 MG, AS NEEDED
  15. LORAZEPAM. [Concomitant]
     Active Substance: LORAZEPAM
     Dosage: 0.5 MG, EVERY 4-6 HOURS AS NEEDED FOR ANXIETY
     Dates: end: 2019
  16. BACLOFEN. [Concomitant]
     Active Substance: BACLOFEN
  17. VITAMIN D3 [Concomitant]
     Active Substance: CHOLECALCIFEROL
     Dosage: 2000 IU, 1X/DAY
     Dates: end: 2019
  18. TRIPLE ANTIBIOTIC OINTMENT [Concomitant]
     Dosage: UNK, AS NEEDED
     Route: 061
  19. GOCOVRI [Suspect]
     Active Substance: AMANTADINE
     Dosage: 137 MG, 1X/DAY AT BEDTIME
     Route: 048
     Dates: start: 201902, end: 201902
  20. CLONAZEPAM. [Concomitant]
     Active Substance: CLONAZEPAM
     Dosage: 0.5 MG, 1X/DAY AT BEDTIME
     Route: 048
  21. ZOLOFT [Concomitant]
     Active Substance: SERTRALINE HYDROCHLORIDE
     Dosage: 50 MG, 1X/DAY
     Route: 048
  22. GERI-LANTA [Concomitant]
     Dosage: 30 MG, UP TO 6X/DAY AS NEEDED
     Route: 048
  23. ACETAMINOPHEN. [Concomitant]
     Active Substance: ACETAMINOPHEN
     Dosage: 650 MG, EVERY 4 HOURS AS NEEDED
     Route: 048

REACTIONS (6)
  - Insomnia [Recovered/Resolved]
  - Hallucination [Recovering/Resolving]
  - Parkinson^s disease psychosis [Recovering/Resolving]
  - Restless legs syndrome [Unknown]
  - Clostridium difficile infection [Recovered/Resolved]
  - Anxiety disorder [Recovering/Resolving]

NARRATIVE: CASE EVENT DATE: 20181216
